FAERS Safety Report 9121878 (Version 6)
Quarter: 2013Q4

REPORT INFORMATION
  Report Type: Report from Study
  Country: ES (occurrence: ES)
  Receive Date: 20130227
  Receipt Date: 20131101
  Transmission Date: 20140711
  Serious: Yes (Hospitalization, Other)
  Sender: FDA-Public Use
  Company Number: ES-VERTEX PHARMACEUTICALS INC.-2013-002725

PATIENT
  Age: 52 Year
  Sex: Male
  Weight: 65 kg

DRUGS (12)
  1. VX-950 (TELAPREVIR) [Suspect]
     Indication: HEPATITIS C
     Dosage: 750 MG, TID
     Route: 048
     Dates: start: 20121205, end: 20130211
  2. RIBAVIRIN [Suspect]
     Indication: HEPATITIS C
     Dosage: DOSAGE FORM: TABLETS, 200 MG IN THE AM AND 400 MG IN THE PM
     Route: 048
     Dates: start: 20130131, end: 20130211
  3. RIBAVIRIN [Suspect]
     Dosage: DOSAGE FORM: TABLETS
     Route: 048
     Dates: start: 20121205, end: 20130130
  4. PEG INTERFERON [Suspect]
     Indication: PRODUCT USED FOR UNKNOWN INDICATION
     Dosage: DOSAGE FORM: INJECTION
     Route: 058
     Dates: start: 20121205, end: 20130208
  5. REYATAZ [Concomitant]
     Indication: ANTIVIRAL TREATMENT
     Dosage: DOSAGE FORM: UNSPECIFIED
     Route: 048
     Dates: start: 20111125
  6. NORVIR [Concomitant]
     Indication: ANTIVIRAL TREATMENT
     Dosage: DOSAGE FORM: UNSPECIFIED
     Route: 048
     Dates: start: 20111125
  7. VIREAD [Concomitant]
     Indication: ANTIVIRAL TREATMENT
     Dosage: DOSAGE FORM: UNSPECIFIED
     Route: 048
     Dates: start: 20070926
  8. EMTRICITABINE [Concomitant]
     Indication: ANTIVIRAL TREATMENT
     Dosage: DOSAGE FORM: UNSPECIFIED
     Route: 048
     Dates: start: 20070926
  9. CITALOPRAM [Concomitant]
     Indication: DEPRESSION
     Dosage: DOSAGE FORM: UNKNOWN
     Route: 048
     Dates: start: 20121219
  10. LORAZEPAM [Concomitant]
     Indication: DEPRESSION
     Dosage: DOSAGE FORM: UNSPECIFIED
     Route: 048
     Dates: start: 20121219
  11. LEVOCETIRIZINE [Concomitant]
     Indication: PRURITUS
     Dosage: 5 MG, QD
     Route: 048
     Dates: start: 20130130
  12. PYRIMETHAMINE [Concomitant]
     Dosage: 25 MG, QW
     Route: 048
     Dates: start: 20130205

REACTIONS (1)
  - Rash [Recovered/Resolved]
